FAERS Safety Report 14326758 (Version 1)
Quarter: 2017Q4

REPORT INFORMATION
  Report Type: Spontaneous
  Country: FR (occurrence: FR)
  Receive Date: 20171227
  Receipt Date: 20171227
  Transmission Date: 20180321
  Serious: Yes (Other)
  Sender: FDA-Public Use
  Company Number: FR-MERCK KGAA-2037802

PATIENT
  Age: 60 Year
  Sex: Female
  Weight: 90 kg

DRUGS (1)
  1. NOVOTHYROX [Suspect]
     Active Substance: LEVOTHYROXINE SODIUM
     Indication: HYPOTHYROIDISM
     Route: 048
     Dates: start: 20170420, end: 20170917

REACTIONS (6)
  - Abdominal pain upper [Recovered/Resolved]
  - Hypertension [Recovered/Resolved]
  - Sleep disorder [Recovered/Resolved]
  - Arthralgia [Recovered/Resolved]
  - Arrhythmia [Recovered/Resolved]
  - Headache [Recovered/Resolved]

NARRATIVE: CASE EVENT DATE: 20170525
